FAERS Safety Report 21732071 (Version 6)
Quarter: 2024Q4

REPORT INFORMATION
  Report Type: Report from Study
  Country: US (occurrence: US)
  Receive Date: 20221215
  Receipt Date: 20241018
  Transmission Date: 20250114
  Serious: Yes (Other)
  Sender: ABBVIE
  Company Number: US-ABBVIE-4234673

PATIENT
  Age: 73 Year
  Sex: Female

DRUGS (4)
  1. SKYRIZI [Suspect]
     Active Substance: RISANKIZUMAB-RZAA
     Indication: Psoriasis
     Route: 058
  2. SKYRIZI [Suspect]
     Active Substance: RISANKIZUMAB-RZAA
     Indication: Psoriatic arthropathy
     Route: 058
     Dates: start: 20220513
  3. SKYRIZI [Suspect]
     Active Substance: RISANKIZUMAB-RZAA
     Dosage: LAST ADMINISTRATION (TEXT)-2022
     Route: 058
     Dates: start: 20220404
  4. SKYRIZI [Suspect]
     Active Substance: RISANKIZUMAB-RZAA
     Route: 058
     Dates: start: 20230405

REACTIONS (30)
  - Breast cancer [Unknown]
  - Syncope [Unknown]
  - Tooth extraction [Unknown]
  - Fall [Not Recovered/Not Resolved]
  - Pruritus [Unknown]
  - Skin fissures [Not Recovered/Not Resolved]
  - Foot amputation [Unknown]
  - Breast conserving surgery [Unknown]
  - Depression [Unknown]
  - Hallucination [Unknown]
  - Osteomyelitis [Unknown]
  - Dry skin [Unknown]
  - Pain in extremity [Unknown]
  - Pruritus [Unknown]
  - Urinary retention [Unknown]
  - Scratch [Unknown]
  - Arthritis bacterial [Unknown]
  - Contusion [Unknown]
  - Arthralgia [Unknown]
  - Head injury [Unknown]
  - Eczema [Unknown]
  - Body modification [Unknown]
  - Wound haemorrhage [Unknown]
  - Cystocele [Unknown]
  - Ear injury [Unknown]
  - Osteoarthritis [Unknown]
  - Blister [Unknown]
  - Limb injury [Unknown]
  - Arthralgia [Unknown]
  - Pain [Unknown]

NARRATIVE: CASE EVENT DATE: 20220411
